FAERS Safety Report 5444633-2 (Version None)
Quarter: 2007Q3

REPORT INFORMATION
  Report Type: 
  Country: None (occurrence: None)
  Receive Date: 20070906
  Receipt Date: 20070829
  Transmission Date: 20080115
  Serious: Yes (Other)
  Sender: FDA-Public Use
  Company Number: JP-MERCK-0708USA03821

PATIENT
  Age: 71 Year
  Sex: Female
  Weight: 53 kg

DRUGS (1)
  1. HYZAAR [Suspect]
     Indication: HYPERTENSION
     Route: 048
     Dates: start: 20070213, end: 20070806

REACTIONS (1)
  - SUPRAVENTRICULAR EXTRASYSTOLES [None]
